FAERS Safety Report 23598922 (Version 3)
Quarter: 2024Q3

REPORT INFORMATION
  Report Type: Report from Study
  Country: US (occurrence: US)
  Receive Date: 20240306
  Receipt Date: 20240918
  Transmission Date: 20241017
  Serious: Yes (Other)
  Sender: UCB
  Company Number: US-UCBSA-2024009445

PATIENT
  Sex: Male
  Weight: 52 kg

DRUGS (2)
  1. FINTEPLA [Suspect]
     Active Substance: FENFLURAMINE
     Indication: Lennox-Gastaut syndrome
     Dosage: 5.9 MILLILITER, 2X/DAY (BID)
     Dates: start: 20240306
  2. FINTEPLA [Suspect]
     Active Substance: FENFLURAMINE
     Dosage: 6.5 MILLILITER, 2X/DAY (BID)
     Dates: start: 2024

REACTIONS (3)
  - Pulmonary valve incompetence [Unknown]
  - Off label use [Unknown]
  - Prescribed overdose [Unknown]

NARRATIVE: CASE EVENT DATE: 20240101
